FAERS Safety Report 4617883-2 (Version None)
Quarter: 2005Q1

REPORT INFORMATION
  Report Type: 
  Country: None (occurrence: None)
  Receive Date: 20050322
  Receipt Date: 20050310
  Transmission Date: 20050727
  Serious: Yes (Death)
  Sender: FDA-Public Use
  Company Number: 805#1#2005-00009

PATIENT
  Age: 50 Year
  Sex: Male

DRUGS (3)
  1. ALPROSTADIL [Suspect]
     Indication: HEPATIC FAILURE
     Dosage: I.N.R. INTRA-ARTERIAL
     Route: 013
  2. LAMIVUDINE [Concomitant]
  3. MENATETRENONE [Concomitant]

REACTIONS (1)
  - OESOPHAGEAL VARICES HAEMORRHAGE [None]
